FAERS Safety Report 9907576 (Version 1)
Quarter: 2014Q1

REPORT INFORMATION
  Report Type: Report from Study
  Country: CZ (occurrence: CZ)
  Receive Date: 20140218
  Receipt Date: 20140218
  Transmission Date: 20141002
  Serious: Yes (Other)
  Sender: FDA-Public Use
  Company Number: CZ-PFIZER INC-2014045697

PATIENT
  Age: 67 Year
  Sex: Female
  Weight: 73 kg

DRUGS (2)
  1. SUTENT [Suspect]
     Indication: RENAL CELL CARCINOMA
     Dosage: 50 MG, CYCLIC, 1X/DAY 4 WEEKS ON/2WEEKS OFF
     Route: 048
     Dates: start: 201004
  2. SUTENT [Suspect]
     Dosage: 25 MG, CYCLIC, 1X/DAY 4 WEEKS ON/2WEEKS OFF
     Route: 048
     Dates: end: 201308

REACTIONS (11)
  - Diabetes mellitus [Unknown]
  - Diarrhoea [Unknown]
  - Alopecia [Unknown]
  - Aphthous stomatitis [Unknown]
  - Gingival pain [Unknown]
  - Asthenia [Unknown]
  - Fatigue [Unknown]
  - Feeling cold [Unknown]
  - Pain in extremity [Unknown]
  - Gastrooesophageal reflux disease [Unknown]
  - Dyspepsia [Unknown]
